FAERS Safety Report 14146801 (Version 1)
Quarter: 2017Q4

REPORT INFORMATION
  Report Type: Spontaneous
  Country: US (occurrence: US)
  Receive Date: 20171031
  Receipt Date: 20171031
  Transmission Date: 20180321
  Serious: No
  Sender: FDA-Public Use
  Company Number: US-PERRIGO-17US025752

PATIENT
  Age: 83 Year
  Sex: Female
  Weight: 55.78 kg

DRUGS (2)
  1. WARFARIN [Concomitant]
     Active Substance: WARFARIN
     Indication: CARDIAC OPERATION
     Dosage: UNKNOWN, UNKNOWN
     Route: 048
  2. DOXYLAMINE SUCCINATE. [Suspect]
     Active Substance: DOXYLAMINE SUCCINATE
     Indication: INSOMNIA
     Dosage: 25 MG, QD NIGHTLY
     Route: 048
     Dates: start: 201706, end: 20170805

REACTIONS (2)
  - Drug effect decreased [Unknown]
  - Incorrect drug administration duration [Recovered/Resolved]

NARRATIVE: CASE EVENT DATE: 201706
